FAERS Safety Report 4270536-5 (Version None)
Quarter: 2004Q1

REPORT INFORMATION
  Report Type: 
  Country: None (occurrence: None)
  Receive Date: 20040113
  Receipt Date: 20040113
  Transmission Date: 20041129
  Serious: Yes (Hospitalization)
  Sender: FDA-Public Use
  Company Number: None

PATIENT
  Age: 79 Year
  Sex: Female
  Weight: 67.2 kg

DRUGS (9)
  1. IRINOTECAN PHARMACIA [Suspect]
     Indication: RECTAL CANCER
     Dosage: 100 MG/M2 DAYS 1, 8 IV
     Route: 042
     Dates: start: 20031006, end: 20031222
  2. IRINOTECAN PHARMACIA [Suspect]
  3. CAPECITABINE [Suspect]
     Indication: RECTAL CANCER
     Dosage: 1, 500 MG/M2 14 DAYS ORAL
     Route: 048
     Dates: start: 20031006, end: 20031229
  4. CAPECITABINE [Suspect]
  5. WARFARIN SODIUM [Concomitant]
  6. PYRIDOXINE [Concomitant]
  7. CELEBREX [Concomitant]
  8. NORVASC [Concomitant]
  9. FESO4 [Concomitant]

REACTIONS (8)
  - ABSCESS [None]
  - GASTROINTESTINAL DISORDER [None]
  - GASTROINTESTINAL NEOPLASM [None]
  - INTERNATIONAL NORMALISED RATIO INCREASED [None]
  - MASS [None]
  - NECROSIS [None]
  - PYREXIA [None]
  - RECTAL HAEMORRHAGE [None]
